FAERS Safety Report 14860688 (Version 1)
Quarter: 2018Q2

REPORT INFORMATION
  Report Type: Spontaneous
  Country: ES (occurrence: ES)
  Receive Date: 20180508
  Receipt Date: 20180508
  Transmission Date: 20180711
  Serious: Yes (Hospitalization)
  Sender: FDA-Public Use
  Company Number: ES-MYLANLABS-2018M1028761

PATIENT
  Age: 42 Year
  Sex: Male

DRUGS (1)
  1. METHOTREXATE. [Suspect]
     Active Substance: METHOTREXATE
     Indication: PARAPSORIASIS
     Route: 065

REACTIONS (5)
  - Adenovirus infection [Unknown]
  - Respiratory tract infection bacterial [Recovered/Resolved]
  - Mycobacterial infection [Recovered/Resolved]
  - Mycobacterium avium complex infection [Recovered/Resolved]
  - Granulomatous pneumonitis [Recovered/Resolved]
